FAERS Safety Report 6889732-3 (Version None)
Quarter: 2010Q3

REPORT INFORMATION
  Report Type: 
  Country: None (occurrence: None)
  Receive Date: 20100730
  Receipt Date: 20080423
  Transmission Date: 20110219
  Serious: Yes (Other)
  Sender: FDA-Public Use
  Company Number: US-PFIZER INC-2008035757

PATIENT
  Sex: Male
  Weight: 96.2 kg

DRUGS (5)
  1. LIPITOR [Suspect]
     Indication: BLOOD CHOLESTEROL INCREASED
     Dates: start: 19980101
  2. WARFARIN SODIUM [Concomitant]
  3. NEXIUM [Concomitant]
  4. TIMOLOL MALEATE [Concomitant]
     Dates: start: 19990101
  5. XALATAN [Concomitant]
     Dates: start: 19990101

REACTIONS (1)
  - ATRIAL FIBRILLATION [None]
